FAERS Safety Report 8890944 (Version 2)
Quarter: 2012Q4

REPORT INFORMATION
  Report Type: 
  Country: US (occurrence: US)
  Receive Date: 20121107
  Receipt Date: 20121119
  Transmission Date: 20130627
  Serious: Yes (Other)
  Sender: FDA-Public Use
  Company Number: US-PFIZER INC-2012266398

PATIENT
  Age: 51 Year
  Sex: Female
  Weight: 74.83 kg

DRUGS (3)
  1. CHAPSTICK [Suspect]
     Dosage: UNK
     Dates: start: 20121022, end: 20121022
  2. ALBUTEROL [Concomitant]
     Indication: ASTHMA
     Dosage: UNK, as needed
  3. PEPCID [Concomitant]
     Dosage: UNK

REACTIONS (6)
  - Oral discomfort [Unknown]
  - Lip disorder [Unknown]
  - Lip blister [Unknown]
  - Application site vesicles [None]
  - Application site pain [None]
  - Application site swelling [None]
